FAERS Safety Report 11433280 (Version 1)
Quarter: 2015Q3

REPORT INFORMATION
  Report Type: Spontaneous
  Country: US (occurrence: US)
  Receive Date: 20150830
  Receipt Date: 20150830
  Transmission Date: 20151125
  Serious: Yes (Hospitalization)
  Sender: FDA-Public Use
  Company Number: US-B.I. PHARMACEUTICALS,INC./RIDGEFIELD-2015-BI-45552BP

PATIENT
  Age: 33 Year
  Sex: Female
  Weight: 55.79 kg

DRUGS (1)
  1. DULCOLAX TABLETS FOR WOMEN [Suspect]
     Active Substance: BISACODYL
     Indication: CONSTIPATION
     Dosage: 15 MG
     Route: 048
     Dates: start: 20150818, end: 20150819

REACTIONS (5)
  - Haemorrhage [Not Recovered/Not Resolved]
  - Vomiting [Recovered/Resolved]
  - Nausea [Not Recovered/Not Resolved]
  - Diarrhoea [Not Recovered/Not Resolved]
  - Abdominal pain upper [Not Recovered/Not Resolved]

NARRATIVE: CASE EVENT DATE: 20150818
